FAERS Safety Report 8305586-2 (Version None)
Quarter: 2012Q2

REPORT INFORMATION
  Report Type: 
  Country: None (occurrence: None)
  Receive Date: 20120423
  Receipt Date: 20120416
  Transmission Date: 20120825
  Serious: No
  Sender: FDA-Public Use
  Company Number: US-PFIZER INC-2012062961

PATIENT
  Sex: Male
  Weight: 79.365 kg

DRUGS (1)
  1. CARDURA [Suspect]
     Indication: URINARY TRACT DISORDER
     Dosage: 4 MG Q DAY 1 TAB

REACTIONS (5)
  - HYPERSOMNIA [None]
  - HYPERSENSITIVITY [None]
  - FATIGUE [None]
  - HEADACHE [None]
  - ABDOMINAL PAIN UPPER [None]
